FAERS Safety Report 13329608 (Version 1)
Quarter: 2017Q1

REPORT INFORMATION
  Report Type: Spontaneous
  Country: TR (occurrence: TR)
  Receive Date: 20170313
  Receipt Date: 20170313
  Transmission Date: 20170428
  Serious: Yes (Hospitalization, Other)
  Sender: FDA-Public Use
  Company Number: TR-GLAXOSMITHKLINE-TR2017GSK034124

PATIENT
  Age: 67 Year
  Sex: Male

DRUGS (2)
  1. DIPHENYLHYDANTOIN [Suspect]
     Active Substance: PHENYTOIN
     Indication: GENERALISED TONIC-CLONIC SEIZURE
  2. LAMOTRIGINE. [Suspect]
     Active Substance: LAMOTRIGINE
     Indication: GENERALISED TONIC-CLONIC SEIZURE
     Dosage: 25 MG, QD

REACTIONS (7)
  - Erythema [Unknown]
  - Balance disorder [Unknown]
  - Blister [Unknown]
  - Oedema [Unknown]
  - Haemorrhage [Unknown]
  - Conjunctival hyperaemia [Recovered/Resolved]
  - Rash maculo-papular [Recovered/Resolved]
